FAERS Safety Report 6017005-X (Version None)
Quarter: 2008Q4

REPORT INFORMATION
  Report Type: 
  Country: None (occurrence: None)
  Receive Date: 20081223
  Receipt Date: 20081209
  Transmission Date: 20090506
  Serious: Yes (Other)
  Sender: FDA-Public Use
  Company Number: GR-ROCHE-602401

PATIENT
  Age: 55 Year
  Sex: Female

DRUGS (4)
  1. MYCOPHENOLATE MOFETIL [Suspect]
     Route: 065
  2. MONOCLONAL ANTIBODY [Concomitant]
     Dosage: INITIAL TREATMENT.  REPORTED AS MONOCLONAL ANTIBODY AGAINST IL-2.
  3. PREDNISOLONE [Concomitant]
  4. CYCLOSPORINE [Concomitant]

REACTIONS (1)
  - PERITONITIS SCLEROSING [None]
